FAERS Safety Report 15519123 (Version 1)
Quarter: 2018Q4

REPORT INFORMATION
  Report Type: Report from Study
  Country: US (occurrence: US)
  Receive Date: 20181017
  Receipt Date: 20181017
  Transmission Date: 20190205
  Serious: No
  Sender: FDA-Public Use
  Company Number: US-AMGEN-USASL2018097841

PATIENT
  Age: 69 Year
  Sex: Female

DRUGS (1)
  1. REPATHA [Suspect]
     Active Substance: EVOLOCUMAB
     Indication: BLOOD CHOLESTEROL INCREASED
     Dosage: 140 MG, Q2WK
     Route: 065

REACTIONS (6)
  - Influenza like illness [Recovered/Resolved]
  - Panic attack [Unknown]
  - Hot flush [Unknown]
  - Feeling jittery [Unknown]
  - Feeling hot [Unknown]
  - Hypertension [Unknown]

NARRATIVE: CASE EVENT DATE: 201807
